FAERS Safety Report 7804437-X (Version None)
Quarter: 2011Q4

REPORT INFORMATION
  Report Type: 
  Country: None (occurrence: None)
  Receive Date: 20111010
  Receipt Date: 20111003
  Transmission Date: 20120403
  Serious: Yes (Other)
  Sender: FDA-Public Use
  Company Number: US-AMGEN-USASP2011051131

PATIENT
  Age: 93 Year
  Sex: Male

DRUGS (9)
  1. TRIAMCINOLONE [Concomitant]
     Indication: PSORIASIS
     Dosage: UNK
  2. HUMIRA [Suspect]
     Indication: PSORIATIC ARTHROPATHY
     Dosage: 40 MG, Q2WK
     Route: 058
     Dates: start: 20110301
  3. CAPSAICIN [Concomitant]
     Indication: MUSCULOSKELETAL PAIN
     Dosage: UNK
  4. FLUNISOLIDE [Concomitant]
     Indication: HYPERSENSITIVITY
     Route: 045
  5. ENBREL [Suspect]
     Indication: PRODUCT USED FOR UNKNOWN INDICATION
     Dosage: UNK
  6. HUMIRA [Suspect]
     Dosage: 40 MG, QWK
     Route: 058
     Dates: end: 20110301
  7. MULTIVITAMIN                       /00097801/ [Concomitant]
  8. OMEPRAZOLE [Concomitant]
     Indication: GASTROOESOPHAGEAL REFLUX DISEASE
     Dosage: 10 MG, UNK
  9. OMEPRAZOLE [Concomitant]
     Dosage: 20 MG, QD

REACTIONS (15)
  - INJECTION SITE HAEMORRHAGE [None]
  - HYPERTENSION [None]
  - DRY EYE [None]
  - SWELLING [None]
  - DRUG INEFFECTIVE [None]
  - POLLAKIURIA [None]
  - POOR PERIPHERAL CIRCULATION [None]
  - CARDIAC DISORDER [None]
  - PAIN [None]
  - CONSTIPATION [None]
  - PAIN IN EXTREMITY [None]
  - MUSCULOSKELETAL PAIN [None]
  - INJECTION SITE PAIN [None]
  - CEREBROVASCULAR ACCIDENT [None]
  - NEOPLASM [None]
